FAERS Safety Report 26068406 (Version 1)
Quarter: 2025Q4

REPORT INFORMATION
  Report Type: Spontaneous
  Country: US (occurrence: US)
  Receive Date: 20251120
  Receipt Date: 20251120
  Transmission Date: 20260117
  Serious: No
  Sender: CIPLA
  Company Number: US-CIPLA LTD.-2025US14375

PATIENT

DRUGS (3)
  1. ALBUTEROL [Suspect]
     Active Substance: ALBUTEROL
     Indication: Lung disorder
     Dosage: 180 MICROGRAM, PRN (2 PUFFS, EVERY 4 HOURS AS NEEDED)
     Route: 065
     Dates: start: 2023
  2. ALBUTEROL [Suspect]
     Active Substance: ALBUTEROL
     Dosage: 180 MICROGRAM, PRN (2 PUFFS, EVERY 4 HOURS AS NEEDED)
     Route: 065
  3. ALBUTEROL SULFATE [Concomitant]
     Active Substance: ALBUTEROL SULFATE
     Indication: Lung disorder
     Dosage: UNK, TID (THRICE A DAY VIA NEBULIZER), 3-4 YEARS AGO

REACTIONS (4)
  - Drug dose omission by device [Unknown]
  - Off label use [Unknown]
  - Wrong technique in product usage process [Unknown]
  - Device delivery system issue [Unknown]
